FAERS Safety Report 16097862 (Version 3)
Quarter: 2019Q2

REPORT INFORMATION
  Report Type: Spontaneous
  Country: None (occurrence: US)
  Receive Date: 20190320
  Receipt Date: 20190502
  Transmission Date: 20190711
  Serious: Yes (Other)
  Sender: FDA-Public Use
  Company Number: PHEH2019US011349

PATIENT
  Sex: Female
  Weight: 55.6 kg

DRUGS (5)
  1. DARZALEX [Suspect]
     Active Substance: DARATUMUMAB
     Indication: PLASMA CELL MYELOMA
     Dosage: 900 MG, UNK
     Route: 042
     Dates: start: 20160211, end: 20190327
  2. ZOMETA [Suspect]
     Active Substance: ZOLEDRONIC ACID
     Dosage: (EVERY THREE MONTHS NOW)
     Route: 042
  3. ZOMETA [Suspect]
     Active Substance: ZOLEDRONIC ACID
     Indication: PLASMA CELL MYELOMA
     Dosage: UNK
     Route: 042
     Dates: start: 2010
  4. ZOMETA [Suspect]
     Active Substance: ZOLEDRONIC ACID
     Dosage: UNK (3.4)
     Route: 042
     Dates: start: 20180620, end: 20190227
  5. ZOMETA [Suspect]
     Active Substance: ZOLEDRONIC ACID
     Dosage: (FEW TIMES A WEEK)
     Route: 042
     Dates: start: 20160418

REACTIONS (10)
  - Gingival bleeding [Unknown]
  - Abdominal pain upper [Unknown]
  - Decreased appetite [Unknown]
  - Eating disorder [Unknown]
  - Gingival disorder [Unknown]
  - Drug intolerance [Unknown]
  - Haemoptysis [Unknown]
  - Dental caries [Unknown]
  - Vomiting [Recovering/Resolving]
  - Nausea [Recovering/Resolving]
